FAERS Safety Report 24294822 (Version 1)
Quarter: 2024Q3

REPORT INFORMATION
  Report Type: Spontaneous
  Country: FR (occurrence: FR)
  Receive Date: 20240907
  Receipt Date: 20240907
  Transmission Date: 20241016
  Serious: Yes (Other)
  Sender: ACCORD
  Company Number: None

PATIENT
  Age: 63 Year
  Sex: Male

DRUGS (1)
  1. MONTELUKAST SODIUM [Suspect]
     Active Substance: MONTELUKAST\MONTELUKAST SODIUM
     Indication: Asthma
     Dosage: 10 MG

REACTIONS (1)
  - Affective disorder [Recovering/Resolving]
